FAERS Safety Report 9587603 (Version 3)
Quarter: 2013Q4

REPORT INFORMATION
  Report Type: Spontaneous
  Country: ZA (occurrence: ZA)
  Receive Date: 20131003
  Receipt Date: 20131125
  Transmission Date: 20140711
  Serious: Yes (Other)
  Sender: FDA-Public Use
  Company Number: ZA-ABBVIE-13P-143-1126319-00

PATIENT
  Sex: Female

DRUGS (4)
  1. HUMIRA [Suspect]
     Indication: CROHN^S DISEASE
     Dosage: 160MG LOADING DOSE; 40MG
     Route: 058
     Dates: start: 20130717
  2. UNKNOWN MEDICATIONS [Concomitant]
     Indication: HYPERTENSION
  3. OMEZ [Concomitant]
     Indication: PRODUCT USED FOR UNKNOWN INDICATION
  4. METHOTREXATE [Concomitant]
     Indication: CROHN^S DISEASE
     Dates: start: 20131108

REACTIONS (10)
  - Visual impairment [Not Recovered/Not Resolved]
  - Pruritus [Unknown]
  - Skin reaction [Unknown]
  - Skin reaction [Unknown]
  - Injection site erythema [Unknown]
  - Injection site pruritus [Unknown]
  - Injection site swelling [Unknown]
  - Injection site discolouration [Unknown]
  - Headache [Not Recovered/Not Resolved]
  - Cataract [Unknown]
